FAERS Safety Report 6937776-5 (Version None)
Quarter: 2010Q3

REPORT INFORMATION
  Report Type: 
  Country: None (occurrence: None)
  Receive Date: 20100823
  Receipt Date: 20100818
  Transmission Date: 20110219
  Serious: Yes (Other)
  Sender: FDA-Public Use
  Company Number: US-BRISTOL-MYERS SQUIBB COMPANY-15245095

PATIENT
  Age: 74 Year
  Sex: Female

DRUGS (5)
  1. PACLITAXEL [Suspect]
     Indication: BREAST CANCER IN SITU
  2. CARBOPLATIN [Suspect]
     Indication: BREAST CANCER IN SITU
  3. TAXOTERE [Suspect]
     Indication: BREAST CANCER IN SITU
     Route: 041
  4. TRASTUZUMAB [Suspect]
     Indication: BREAST CANCER IN SITU
  5. RADIATION THERAPY [Suspect]
     Indication: BREAST CANCER IN SITU

REACTIONS (2)
  - BONE MARROW FAILURE [None]
  - RECALL PHENOMENON [None]
